FAERS Safety Report 10206570 (Version 3)
Quarter: 2014Q3

REPORT INFORMATION
  Report Type: Spontaneous
  Country: US (occurrence: US)
  Receive Date: 20140530
  Receipt Date: 20140725
  Transmission Date: 20150326
  Serious: Yes (Hospitalization)
  Sender: FDA-Public Use
  Company Number: US-GLAXOSMITHKLINE-A1039963A

PATIENT
  Sex: Female

DRUGS (4)
  1. ADCIRCA [Concomitant]
     Active Substance: TADALAFIL
  2. COUMADIN [Concomitant]
     Active Substance: WARFARIN SODIUM
  3. LETAIRIS [Concomitant]
     Active Substance: AMBRISENTAN
  4. FLOLAN [Suspect]
     Active Substance: EPOPROSTENOL SODIUM
     Indication: PULMONARY ARTERIAL HYPERTENSION
     Dosage: 38.24NGKM CONTINUOUS
     Route: 042
     Dates: start: 20120322, end: 201407

REACTIONS (7)
  - Catheter site pruritus [Unknown]
  - Moaning [Unknown]
  - Investigation [Unknown]
  - Subdural haematoma [Unknown]
  - Therapy cessation [Unknown]
  - Incoherent [Unknown]
  - Cerebrovascular accident [Unknown]
